FAERS Safety Report 7823090-2 (Version None)
Quarter: 2011Q4

REPORT INFORMATION
  Report Type: 
  Country: None (occurrence: None)
  Receive Date: 20111019
  Receipt Date: 20111011
  Transmission Date: 20120403
  Serious: Yes (Hospitalization)
  Sender: FDA-Public Use
  Company Number: US-BIOGENIDEC-2010BI034096

PATIENT
  Age: 36 Year
  Sex: Female
  Weight: 72 kg

DRUGS (3)
  1. H1N1 VACCINE [Concomitant]
     Indication: H1N1 INFLUENZA
     Route: 030
     Dates: start: 20100901, end: 20100901
  2. TYSABRI [Suspect]
     Indication: MULTIPLE SCLEROSIS
     Route: 042
     Dates: start: 20070605
  3. FLU SHOT [Concomitant]
     Indication: ANTIVIRAL PROPHYLAXIS
     Route: 030
     Dates: start: 20100913, end: 20100913

REACTIONS (7)
  - VACCINATION COMPLICATION [None]
  - MIGRAINE [None]
  - VOMITING [None]
  - SLEEP DISORDER [None]
  - NASOPHARYNGITIS [None]
  - MULTIPLE SCLEROSIS RELAPSE [None]
  - BLOOD GLUCOSE INCREASED [None]
